FAERS Safety Report 9511388 (Version 3)
Quarter: 2013Q4

REPORT INFORMATION
  Report Type: Spontaneous
  Country: SE (occurrence: SE)
  Receive Date: 20130910
  Receipt Date: 20131009
  Transmission Date: 20140711
  Serious: Yes (Hospitalization)
  Sender: FDA-Public Use
  Company Number: SE-BRISTOL-MYERS SQUIBB COMPANY-19219120

PATIENT
  Age: 22 Year
  Sex: Female

DRUGS (8)
  1. ABILIFY TABS [Suspect]
     Dates: end: 20130513
  2. SERTRALINE HCL [Suspect]
     Dosage: RANBAXY FILM COATED TABLET 50 MG
     Dates: end: 20130513
  3. HYOSCYAMINE [Suspect]
     Dates: end: 20130513
  4. NITRAZEPAM [Suspect]
     Dosage: TAB
     Dates: end: 20130513
  5. CLOZAPINE [Suspect]
     Dosage: CLOZAPINE ACTAVIS TABLET 100 MG
     Dates: start: 20121218, end: 20130513
  6. XANOR [Suspect]
     Dates: end: 20130513
  7. TEMESTA [Suspect]
  8. AKINETON [Suspect]

REACTIONS (3)
  - Depressed level of consciousness [Unknown]
  - Toxicity to various agents [Unknown]
  - Urinary retention [Unknown]
